FAERS Safety Report 11595620 (Version 1)
Quarter: 2015Q4

REPORT INFORMATION
  Report Type: Spontaneous
  Country: GB (occurrence: None)
  Receive Date: 20151002
  Receipt Date: 20151002
  Transmission Date: 20160304
  Serious: No
  Sender: FDA-Public Use
  Company Number: GB2015K5869SPO

PATIENT
  Age: 52 Year
  Sex: Female

DRUGS (3)
  1. LANSOPRAZOLE GENERIC (LANSOPRAZOLE) UNKNOWN [Suspect]
     Active Substance: LANSOPRAZOLE
     Indication: GASTROOESOPHAGEAL REFLUX DISEASE
     Route: 048
     Dates: start: 201508
  2. HRT [Concomitant]
     Active Substance: UNSPECIFIED INGREDIENT
  3. LANSOPRAZOLE GENERIC (LANSOPRAZOLE) UNKNOWN [Suspect]
     Active Substance: LANSOPRAZOLE
     Indication: HELICOBACTER INFECTION
     Route: 048
     Dates: start: 201508

REACTIONS (4)
  - Breast pain [None]
  - Genital discomfort [None]
  - Nausea [None]
  - Abdominal pain upper [None]
